FAERS Safety Report 14576954 (Version 1)
Quarter: 2018Q1

REPORT INFORMATION
  Report Type: Spontaneous
  Country: US (occurrence: US)
  Receive Date: 20180225
  Receipt Date: 20180225
  Transmission Date: 20180509
  Serious: No
  Sender: FDA-Public Use
  Company Number: None

PATIENT
  Age: 55 Year
  Sex: Female
  Weight: 70.2 kg

DRUGS (5)
  1. FASLODEX [Concomitant]
     Active Substance: FULVESTRANT
  2. FORFIVO XL [Suspect]
     Active Substance: BUPROPION HYDROCHLORIDE
     Indication: DEPRESSION
     Dosage: ?          QUANTITY:1 TABLET(S);?
     Route: 048
  3. TYLENOL [Concomitant]
     Active Substance: ACETAMINOPHEN
  4. IBRANCE [Concomitant]
     Active Substance: PALBOCICLIB
  5. IBUPROFEN. [Concomitant]
     Active Substance: IBUPROFEN

REACTIONS (2)
  - Rash [None]
  - Pruritus [None]

NARRATIVE: CASE EVENT DATE: 20180225
